FAERS Safety Report 5897265-6 (Version None)
Quarter: 2008Q3

REPORT INFORMATION
  Report Type: 
  Country: None (occurrence: None)
  Receive Date: 20080923
  Receipt Date: 20080909
  Transmission Date: 20090109
  Serious: Yes (Hospitalization)
  Sender: FDA-Public Use
  Company Number: RENA-12357

PATIENT
  Age: 64 Year
  Sex: Female
  Weight: 36 kg

DRUGS (8)
  1. RENAGEL [Suspect]
     Indication: HYPERPHOSPHATAEMIA
     Dosage: 6 G/DAY, ORAL; 1.5 G/DAY, ORAL
     Route: 048
     Dates: end: 20060920
  2. RENAGEL [Suspect]
     Indication: HYPERPHOSPHATAEMIA
     Dosage: 6 G/DAY, ORAL; 1.5 G/DAY, ORAL
     Route: 048
     Dates: start: 20030708
  3. CALCIUM CARBONATE (CALCIUM CARBONATE) [Concomitant]
  4. WARFARIN POTASSIUM (WARFARIN POTASSIUM) [Concomitant]
  5. AMLODIPINE BESYLATE [Concomitant]
  6. FALECALCITRIOL (FALECALCITRIOL) [Concomitant]
  7. FAMOTIDINE [Concomitant]
  8. KEISHIBUKURYOUGAN (HERBAL EXTRACT NOS) [Concomitant]

REACTIONS (4)
  - DIVERTICULITIS [None]
  - HYPERVENTILATION [None]
  - ILEITIS [None]
  - METABOLIC ACIDOSIS [None]
